FAERS Safety Report 6332326-9 (Version None)
Quarter: 2009Q3

REPORT INFORMATION
  Report Type: 
  Country: None (occurrence: None)
  Receive Date: 20090827
  Receipt Date: 20090827
  Transmission Date: 20100115
  Serious: Yes (Hospitalization)
  Sender: FDA-Public Use
  Company Number: None

PATIENT
  Sex: Male
  Weight: 94.7 kg

DRUGS (3)
  1. CARBOPLATIN [Suspect]
     Indication: HYPOPHARYNGEAL CANCER
     Dosage: AUC 6 Q4WKS IV 8/11/09
     Route: 042
     Dates: start: 20090811
  2. TAXOL [Suspect]
     Dosage: 100MG/M2 WEEKLY IV
     Route: 042
     Dates: start: 20090818
  3. CETUXIMAB [Suspect]
     Dosage: 250MG IV X1 8/18/09 400MG IV X1 8/11/09

REACTIONS (2)
  - HEART RATE DECREASED [None]
  - MENTAL STATUS CHANGES [None]
